FAERS Safety Report 4994443-5 (Version None)
Quarter: 2006Q2

REPORT INFORMATION
  Report Type: 
  Country: None (occurrence: None)
  Receive Date: 20060503
  Receipt Date: 20060420
  Transmission Date: 20061013
  Serious: Yes (Other)
  Sender: FDA-Public Use
  Company Number: 2006054540

PATIENT
  Age: 60 Year
  Sex: Male
  Weight: 58 kg

DRUGS (2)
  1. PHENYTOIN [Suspect]
     Indication: CONVULSION
     Dosage: 260 MG (260 MG, 1 IN 1 D), ORAL
     Route: 048
     Dates: start: 20050923, end: 20051011
  2. SIMVASTATIN [Concomitant]

REACTIONS (4)
  - LEUKOPENIA [None]
  - MOUTH ULCERATION [None]
  - RASH MACULO-PAPULAR [None]
  - THROMBOCYTOPENIA [None]
